FAERS Safety Report 16474568 (Version 1)
Quarter: 2019Q3

REPORT INFORMATION
  Report Type: Spontaneous
  Country: US (occurrence: US)
  Receive Date: 20190624
  Receipt Date: 20190624
  Transmission Date: 20191004
  Serious: No
  Sender: FDA-Public Use
  Company Number: None

PATIENT
  Sex: Female

DRUGS (1)
  1. UDENYCA [Suspect]
     Active Substance: PEGFILGRASTIM-CBQV

REACTIONS (5)
  - Diarrhoea [None]
  - Vomiting [None]
  - Dehydration [None]
  - Muscle spasms [None]
  - Palpitations [None]
